FAERS Safety Report 16735058 (Version 1)
Quarter: 2019Q3

REPORT INFORMATION
  Report Type: Spontaneous
  Country: RU (occurrence: RU)
  Receive Date: 20190823
  Receipt Date: 20190823
  Transmission Date: 20191005
  Serious: Yes (Other)
  Sender: FDA-Public Use
  Company Number: RU-AMGEN-RUSSP2019134667

PATIENT
  Age: 8 Year
  Sex: Male

DRUGS (10)
  1. PREDNISOLONE. [Concomitant]
     Active Substance: PREDNISOLONE
     Dosage: 1.5 MG/G, DAILY (MAX DOSE)
     Route: 042
     Dates: start: 2015
  2. HUMAN NORMAL IMMUNOGLOBULIN [Concomitant]
     Active Substance: HUMAN IMMUNOGLOBULIN G
     Indication: DERMATOMYOSITIS
     Dosage: UNK (REPEATED)
     Dates: start: 2015, end: 201611
  3. HYDROXYCHLOROQUINE [Concomitant]
     Active Substance: HYDROXYCHLOROQUINE
     Indication: DERMATOMYOSITIS
     Dosage: UNK
     Dates: start: 2015, end: 201611
  4. CYCLOSPORINE. [Concomitant]
     Active Substance: CYCLOSPORINE
     Indication: DERMATOMYOSITIS
     Dosage: UNK
     Dates: start: 201510, end: 201611
  5. ABATACEPT [Concomitant]
     Active Substance: ABATACEPT
     Indication: DERMATOMYOSITIS
     Dosage: UNK
     Dates: start: 201510, end: 201611
  6. ENBREL [Suspect]
     Active Substance: ETANERCEPT
     Indication: DERMATOMYOSITIS
     Dosage: UNK
     Route: 065
     Dates: start: 201606, end: 201611
  7. METHOTREXATE SODIUM. [Concomitant]
     Active Substance: METHOTREXATE SODIUM
     Indication: DERMATOMYOSITIS
     Dosage: UNK (SEQUENTIALLY)
     Dates: start: 2015, end: 201611
  8. PREDNISOLONE. [Concomitant]
     Active Substance: PREDNISOLONE
     Dosage: UNK (INCREASE THE DOSE)
     Route: 042
     Dates: start: 201510
  9. PREDNISOLONE. [Concomitant]
     Active Substance: PREDNISOLONE
     Dosage: 5 MILLIGRAM, DAILY
     Dates: start: 2016
  10. PREDNISOLONE. [Concomitant]
     Active Substance: PREDNISOLONE
     Indication: DERMATOMYOSITIS
     Dosage: 0.5 MG/G, DAILY (MIN DOSE)
     Route: 042
     Dates: start: 2015

REACTIONS (4)
  - Product use in unapproved indication [Unknown]
  - Systemic lupus erythematosus [Recovering/Resolving]
  - Off label use [Unknown]
  - Overlap syndrome [Recovering/Resolving]

NARRATIVE: CASE EVENT DATE: 201606
